FAERS Safety Report 7134451-1 (Version None)
Quarter: 2010Q4

REPORT INFORMATION
  Report Type: 
  Country: None (occurrence: None)
  Receive Date: 20101130
  Receipt Date: 20101130
  Transmission Date: 20110411
  Serious: Yes (Hospitalization)
  Sender: FDA-Public Use
  Company Number: None

PATIENT
  Age: 61 Year
  Sex: Male

DRUGS (1)
  1. SULFAMETHOXAZOLE AND TRIMETHOPRIM [Suspect]
     Indication: INFECTION PROPHYLAXIS
     Dates: start: 20101012, end: 20101015

REACTIONS (3)
  - DEEP VEIN THROMBOSIS [None]
  - DERMATITIS BULLOUS [None]
  - DRUG ERUPTION [None]
